FAERS Safety Report 23720042 (Version 1)
Quarter: 2024Q2

REPORT INFORMATION
  Report Type: Spontaneous
  Country: TR (occurrence: TR)
  Receive Date: 20240408
  Receipt Date: 20240408
  Transmission Date: 20240716
  Serious: Yes (Hospitalization)
  Sender: FDA-Public Use
  Company Number: TR-MYLANLABS-2024M1031820

PATIENT
  Age: 32 Year
  Sex: Female

DRUGS (1)
  1. EFFEXOR [Suspect]
     Active Substance: VENLAFAXINE HYDROCHLORIDE
     Indication: Depression
     Dosage: TOOK THIRTY TABLETS
     Route: 048

REACTIONS (7)
  - Suicide attempt [Recovering/Resolving]
  - Intentional overdose [Recovering/Resolving]
  - Toxicity to various agents [Recovering/Resolving]
  - Epilepsy [Recovering/Resolving]
  - Generalised tonic-clonic seizure [Recovering/Resolving]
  - Rhabdomyolysis [Recovering/Resolving]
  - Hypoglycaemia [Recovering/Resolving]
